FAERS Safety Report 21177572 (Version 3)
Quarter: 2022Q3

REPORT INFORMATION
  Report Type: Spontaneous
  Country: US (occurrence: US)
  Receive Date: 20220805
  Receipt Date: 20220812
  Transmission Date: 20221027
  Serious: Yes (Other)
  Sender: FDA-Public Use
  Company Number: US-PFIZER INC-202201029990

PATIENT
  Age: 65 Year
  Sex: Female

DRUGS (4)
  1. PAXLOVID [Suspect]
     Active Substance: NIRMATRELVIR\RITONAVIR
     Indication: COVID-19 treatment
     Dosage: UNK
  2. LEVOTHYROXINE [Concomitant]
     Active Substance: LEVOTHYROXINE
     Indication: Hypothyroidism
     Dosage: 75 UG, 1X/DAY
  3. SIMVASTATIN [Concomitant]
     Active Substance: SIMVASTATIN
     Indication: Blood cholesterol increased
     Dosage: 20 MG, 1X/DAY
  4. TIMOLOL [Concomitant]
     Active Substance: TIMOLOL
     Dosage: 0.5 %, 1X/DAY (ONCE IN THE MORNING)

REACTIONS (5)
  - Angle closure glaucoma [Unknown]
  - Intraocular pressure increased [Unknown]
  - Respiratory symptom [Unknown]
  - COVID-19 [Unknown]
  - Disease recurrence [Unknown]
